FAERS Safety Report 20664452 (Version 1)
Quarter: 2022Q2

REPORT INFORMATION
  Report Type: Spontaneous
  Country: US (occurrence: US)
  Receive Date: 20220401
  Receipt Date: 20220401
  Transmission Date: 20220720
  Serious: No
  Sender: FDA-Public Use
  Company Number: US-BIOGEN-2021BI01049184

PATIENT
  Sex: Female

DRUGS (13)
  1. TECFIDERA [Suspect]
     Active Substance: DIMETHYL FUMARATE
     Indication: Multiple sclerosis
     Dosage: MAINTENANCE DOSE
     Route: 048
     Dates: start: 20200125, end: 202010
  2. TECFIDERA [Suspect]
     Active Substance: DIMETHYL FUMARATE
     Dosage: STARTING DOSE
     Route: 048
     Dates: start: 20150507
  3. TECFIDERA [Suspect]
     Active Substance: DIMETHYL FUMARATE
     Dosage: MAINTENANCE DOSE
     Route: 048
     Dates: start: 20200101
  4. TECFIDERA [Suspect]
     Active Substance: DIMETHYL FUMARATE
     Route: 048
  5. ATORVASTATIN [Concomitant]
     Active Substance: ATORVASTATIN
     Route: 065
  6. ASPIRIN [Concomitant]
     Active Substance: ASPIRIN
     Route: 065
  7. BACLOFEN [Concomitant]
     Active Substance: BACLOFEN
     Route: 065
  8. HYDROCODONE [Concomitant]
     Active Substance: HYDROCODONE
     Route: 065
  9. OSCAL [Concomitant]
     Active Substance: CALCIUM CARBONATE
     Dosage: 500-200 M
     Route: 065
  10. REQUIP XL [Concomitant]
     Active Substance: ROPINIROLE HYDROCHLORIDE
     Route: 065
  11. SERTRALINE [Concomitant]
     Active Substance: SERTRALINE HYDROCHLORIDE
     Route: 065
  12. Symbicort AER [Concomitant]
     Dosage: 160-4.5 MCG
     Route: 065
  13. SYNTHROID [Concomitant]
     Active Substance: LEVOTHYROXINE SODIUM
     Route: 065

REACTIONS (10)
  - Product dose omission issue [Unknown]
  - Product dose omission in error [Unknown]
  - Tremor [Not Recovered/Not Resolved]
  - Paraesthesia [Not Recovered/Not Resolved]
  - Memory impairment [Not Recovered/Not Resolved]
  - Multiple sclerosis relapse [Not Recovered/Not Resolved]
  - Gait disturbance [Not Recovered/Not Resolved]
  - Muscle spasms [Not Recovered/Not Resolved]
  - Fatigue [Not Recovered/Not Resolved]
  - Diarrhoea [Not Recovered/Not Resolved]

NARRATIVE: CASE EVENT DATE: 20150101
